FAERS Safety Report 16151456 (Version 1)
Quarter: 2019Q2

REPORT INFORMATION
  Report Type: Spontaneous
  Country: US (occurrence: US)
  Receive Date: 20190403
  Receipt Date: 20190403
  Transmission Date: 20190711
  Serious: No
  Sender: FDA-Public Use
  Company Number: US-UPSHER-SMITH LABORATORIES, LLC-2018USL00104

PATIENT
  Sex: Male
  Weight: 110.66 kg

DRUGS (5)
  1. UNSPECIFIED ANTI-REJECTION MEDICATIONS [Concomitant]
  2. UNSPECIFIED BLOOD PRESSURE MEDICATIONS [Concomitant]
     Active Substance: UNSPECIFIED INGREDIENT
  3. UNSPECIFIED OTHER IMPORTANT MEDICATIONS [Concomitant]
  4. PREVALITE [Suspect]
     Active Substance: CHOLESTYRAMINE
     Dosage: 1/2 TEASPOON (OR 1 TEASPOON), 2X/DAY (IN ADDITION TO 4 G 2X/DAILY)
     Route: 048
     Dates: start: 2018
  5. PREVALITE [Suspect]
     Active Substance: CHOLESTYRAMINE
     Indication: COLITIS ULCERATIVE
     Dosage: 4 G (ONE PACKET), 2X/DAY
     Route: 048
     Dates: start: 201802

REACTIONS (3)
  - Diarrhoea [Recovering/Resolving]
  - Gastroenteritis viral [Unknown]
  - Therapeutic product effect incomplete [Not Recovered/Not Resolved]

NARRATIVE: CASE EVENT DATE: 2018
